FAERS Safety Report 23206111 (Version 1)
Quarter: 2023Q4

REPORT INFORMATION
  Report Type: Spontaneous
  Country: US (occurrence: US)
  Receive Date: 20231120
  Receipt Date: 20231120
  Transmission Date: 20240110
  Serious: Yes (Other)
  Sender: FDA-Public Use
  Company Number: US-PPDUS-2023ST004346

PATIENT
  Age: 55 Year
  Sex: Female

DRUGS (1)
  1. ORSERDU [Suspect]
     Active Substance: ELACESTRANT
     Indication: Product used for unknown indication
     Dosage: DOSE 345
     Dates: start: 20231019

REACTIONS (3)
  - Cataract [Unknown]
  - Astigmatism [Unknown]
  - Visual impairment [Unknown]
